FAERS Safety Report 16189316 (Version 1)
Quarter: 2019Q2

REPORT INFORMATION
  Report Type: Spontaneous
  Country: US (occurrence: US)
  Receive Date: 20190411
  Receipt Date: 20190411
  Transmission Date: 20190711
  Serious: Yes (Other)
  Sender: FDA-Public Use
  Company Number: None

PATIENT
  Sex: Female

DRUGS (12)
  1. HYDROXYCHLORIDE 200MG TABLETS [Concomitant]
     Dates: start: 20180531
  2. METHOTREXTATE 25MG/ML INJECTION [Concomitant]
     Dates: start: 20180531
  3. PREDNISONE 5MG TABLETS [Concomitant]
     Active Substance: PREDNISONE
     Dates: start: 20180531
  4. CETIRIZINE [Concomitant]
     Active Substance: CETIRIZINE HYDROCHLORIDE
     Dates: start: 20180531
  5. ENBREL [Suspect]
     Active Substance: ETANERCEPT
     Indication: RHEUMATOID ARTHRITIS
     Dosage: ?          OTHER FREQUENCY:ONCE A WEEK;?
     Route: 058
  6. FLUTICASONE 50MCG SPRAY [Concomitant]
     Dates: start: 20180531
  7. FOLIC ACID 1MG TABLETS [Concomitant]
     Active Substance: FOLIC ACID
     Dates: start: 20180531
  8. FLUOXETINE 40MG CAPSULES [Concomitant]
     Active Substance: FLUOXETINE HYDROCHLORIDE
     Dates: start: 20180531
  9. ORENCIA 125MG/ML INJECTION [Concomitant]
     Dates: start: 20180531
  10. BENZONATATE 200MG CAPSULES [Concomitant]
     Active Substance: BENZONATATE
     Dates: start: 20180531
  11. PANTOPRAZOLE 40MG TABLETS [Concomitant]
     Active Substance: PANTOPRAZOLE
     Dates: start: 20180531
  12. VOLTAREN 1% GEL [Concomitant]
     Dates: start: 20180531

REACTIONS (5)
  - Arthropathy [None]
  - Condition aggravated [None]
  - Therapy cessation [None]
  - Surgery [None]
  - Joint fluid drainage [None]
